FAERS Safety Report 8517236-0 (Version None)
Quarter: 2012Q3

REPORT INFORMATION
  Report Type: 
  Country: None (occurrence: None)
  Receive Date: 20120718
  Receipt Date: 20120713
  Transmission Date: 20120928
  Serious: Yes (Hospitalization)
  Sender: FDA-Public Use
  Company Number: FR-PFIZER INC-2012168707

PATIENT
  Age: 27 Year
  Sex: Female
  Weight: 66 kg

DRUGS (8)
  1. SITAGLIPTIN PHOSPHATE [Suspect]
     Dosage: 7 DF, SINGLE
     Route: 048
     Dates: start: 20120611, end: 20120611
  2. ENALAPRIL MALEATE AND HYDROCHLOROTHIAZIDE [Suspect]
     Dosage: 20 MG, 7 DF
     Route: 048
     Dates: start: 20120611, end: 20120611
  3. ZOLOFT [Suspect]
     Dosage: 7 TABLETS
     Route: 048
     Dates: start: 20120611, end: 20120611
  4. GLUCOPHAGE [Suspect]
     Dosage: 1 G, 7 DF
     Route: 048
     Dates: start: 20120611, end: 20120611
  5. AMARYL [Suspect]
     Dosage: 4 MG, 7 DF
     Route: 048
     Dates: start: 20120611, end: 20120611
  6. AMLODIPINE BESYLATE [Suspect]
     Dosage: 5 MG, 7 DF
     Route: 048
     Dates: start: 20120611, end: 20120611
  7. LIPANOR [Suspect]
     Dosage: 100 MG, 7DF
     Route: 048
     Dates: start: 20120611, end: 20120611
  8. MINIPRESS [Suspect]
     Dosage: 5 MG, 5 DF
     Route: 048
     Dates: start: 20120611, end: 20120611

REACTIONS (7)
  - TOXICITY TO VARIOUS AGENTS [None]
  - HYPOMAGNESAEMIA [None]
  - INTENTIONAL OVERDOSE [None]
  - HYPOKALAEMIA [None]
  - HYPOTENSION [None]
  - HYPOGLYCAEMIA [None]
  - METABOLIC ACIDOSIS [None]
